FAERS Safety Report 4375993-1 (Version None)
Quarter: 2004Q2

REPORT INFORMATION
  Report Type: 
  Country: None (occurrence: None)
  Receive Date: 20040607
  Receipt Date: 20040521
  Transmission Date: 20050107
  Serious: Yes (Hospitalization, Other)
  Sender: FDA-Public Use
  Company Number: 197273

PATIENT
  Age: 46 Year
  Sex: Female

DRUGS (6)
  1. AVONEX [Suspect]
     Indication: MULTIPLE SCLEROSIS
     Dosage: 30 MCG QW IM
     Route: 030
     Dates: start: 19980101, end: 20030501
  2. STABLON [Concomitant]
  3. XANAX [Concomitant]
  4. DIFFU K [Concomitant]
  5. MEDROL [Concomitant]
  6. VALPROIC ACID [Concomitant]

REACTIONS (7)
  - AMNESTIC DISORDER [None]
  - APHASIA [None]
  - DISORIENTATION [None]
  - EPILEPSY [None]
  - GLIOBLASTOMA [None]
  - HEMIANOPIA [None]
  - HEMIPARESIS [None]
